FAERS Safety Report 10913134 (Version 2)
Quarter: 2015Q2

REPORT INFORMATION
  Report Type: Spontaneous
  Country: JP (occurrence: JP)
  Receive Date: 20150313
  Receipt Date: 20150402
  Transmission Date: 20150821
  Serious: Yes (Death, Hospitalization)
  Sender: FDA-Public Use
  Company Number: JP-ROCHE-1551709

PATIENT
  Age: 53 Year
  Sex: Male

DRUGS (9)
  1. ARTIST [Concomitant]
     Active Substance: CARVEDILOL
     Route: 065
  2. CRESTOR [Concomitant]
     Active Substance: ROSUVASTATIN CALCIUM
  3. FUROSEMIDE. [Concomitant]
     Active Substance: FUROSEMIDE
  4. FLUITRAN [Concomitant]
     Active Substance: TRICHLORMETHIAZIDE
  5. AZILVA [Concomitant]
     Active Substance: AZILSARTAN KAMEDOXOMIL
  6. ADALAT [Concomitant]
     Active Substance: NIFEDIPINE
  7. EQUA [Concomitant]
     Active Substance: VILDAGLIPTIN
  8. LUCENTIS [Suspect]
     Active Substance: RANIBIZUMAB
     Indication: DIABETIC RETINAL OEDEMA
     Dosage: IN THE RIGHT EYE
     Route: 031
     Dates: start: 20141118
  9. DOXAZOSIN [Concomitant]
     Active Substance: DOXAZOSIN\DOXAZOSIN MESYLATE

REACTIONS (3)
  - Sepsis [Fatal]
  - Shock [Fatal]
  - Pneumonia [Unknown]

NARRATIVE: CASE EVENT DATE: 201501
